FAERS Safety Report 15428453 (Version 1)
Quarter: 2018Q3

REPORT INFORMATION
  Report Type: Spontaneous
  Country: ES (occurrence: ES)
  Receive Date: 20180926
  Receipt Date: 20180926
  Transmission Date: 20181010
  Serious: Yes (Other)
  Sender: FDA-Public Use
  Company Number: ES-ZYDUS-027044

PATIENT
  Age: 55 Year
  Sex: Female

DRUGS (1)
  1. LEVOFLOXACIN. [Suspect]
     Active Substance: LEVOFLOXACIN
     Indication: PNEUMONIA
     Route: 048
     Dates: start: 20180131, end: 20180205

REACTIONS (8)
  - Musculoskeletal chest pain [Unknown]
  - Dyspnoea [Unknown]
  - Chest pain [Unknown]
  - Myalgia [Unknown]
  - Asthenia [Unknown]
  - Visual impairment [Recovered/Resolved]
  - Paraesthesia [Unknown]
  - Fatigue [Unknown]

NARRATIVE: CASE EVENT DATE: 20180201
